FAERS Safety Report 5518925-2 (Version None)
Quarter: 2007Q4

REPORT INFORMATION
  Report Type: 
  Country: None (occurrence: None)
  Receive Date: 20071114
  Receipt Date: 20071114
  Transmission Date: 20080405
  Serious: Yes (Other)
  Sender: FDA-Public Use
  Company Number: None

PATIENT
  Sex: Male
  Weight: 79.3795 kg

DRUGS (1)
  1. MIRAPEX [Suspect]
     Indication: RESTLESS LEGS SYNDROME
     Dosage: 1.0 MG AT BEDTIME PO
     Route: 048
     Dates: start: 20060201, end: 20071109

REACTIONS (4)
  - ABNORMAL BEHAVIOUR [None]
  - FAMILY STRESS [None]
  - OBSESSIVE-COMPULSIVE DISORDER [None]
  - SEXUAL ACTIVITY INCREASED [None]
